FAERS Safety Report 8583332-5 (Version None)
Quarter: 2012Q3

REPORT INFORMATION
  Report Type: 
  Country: None (occurrence: None)
  Receive Date: 20120809
  Receipt Date: 20120731
  Transmission Date: 20120928
  Serious: Yes (Hospitalization)
  Sender: FDA-Public Use
  Company Number: JP-B.I. PHARMACEUTICALS,INC./RIDGEFIELD-2012-EU-02122GD

PATIENT
  Sex: Male
  Weight: 60.1 kg

DRUGS (4)
  1. WARFARIN SODIUM [Concomitant]
     Dosage: 1.5 MG
     Route: 048
     Dates: start: 20000814, end: 20110613
  2. AMLODIPINE [Concomitant]
     Indication: HYPERTENSION
     Dosage: 10 MG
     Route: 048
     Dates: start: 20061121
  3. DIGOXIN [Concomitant]
     Indication: CARDIAC FAILURE
     Dosage: 0.125 MG
     Route: 048
     Dates: start: 20010205
  4. DABIGATRAN [Suspect]
     Indication: ATRIAL FIBRILLATION
     Dosage: 220 MG
     Route: 048
     Dates: start: 20110613

REACTIONS (1)
  - CEREBRAL INFARCTION [None]
